FAERS Safety Report 6936340-1 (Version None)
Quarter: 2010Q3

REPORT INFORMATION
  Report Type: 
  Country: None (occurrence: None)
  Receive Date: 20100823
  Receipt Date: 20100510
  Transmission Date: 20110219
  Serious: No
  Sender: FDA-Public Use
  Company Number: US-MYLANLABS-2010S1008440

PATIENT
  Age: 83 Year
  Sex: Female
  Weight: 52.62 kg

DRUGS (4)
  1. ROPINIROLE HYDROCHLORIDE [Suspect]
     Indication: PARKINSON'S DISEASE
     Route: 048
     Dates: start: 20100301, end: 20100505
  2. HYDROCODONE BITARTRATE [Concomitant]
     Indication: BACK PAIN
  3. BLOOD PRESSURE MEDICATION [Concomitant]
     Indication: HYPERTENSION
  4. PLAVIX [Concomitant]

REACTIONS (5)
  - ASTHENIA [None]
  - HALLUCINATION [None]
  - NAUSEA [None]
  - NIGHT SWEATS [None]
  - SOMNOLENCE [None]
